FAERS Safety Report 6802193-5 (Version None)
Quarter: 2010Q2

REPORT INFORMATION
  Report Type: 
  Country: None (occurrence: None)
  Receive Date: 20100629
  Receipt Date: 20071226
  Transmission Date: 20101027
  Serious: Yes (Hospitalization, Other)
  Sender: FDA-Public Use
  Company Number: US-PFIZER INC-2007033487

PATIENT
  Sex: Female

DRUGS (19)
  1. BEXTRA [Suspect]
     Indication: NECK PAIN
     Route: 048
     Dates: start: 20040101
  2. VIOXX [Suspect]
     Indication: NECK PAIN
     Route: 048
     Dates: start: 19990301, end: 20031201
  3. VIOXX [Suspect]
     Indication: OSTEOARTHRITIS
  4. LEXAPRO [Concomitant]
     Indication: DEPRESSION
     Dates: start: 20040501
  5. PAXIL [Concomitant]
     Indication: DEPRESSION
     Dates: start: 20000901, end: 20041201
  6. REMERON [Concomitant]
     Indication: DEPRESSION
     Dates: start: 20030901, end: 20041201
  7. TOPAMAX [Concomitant]
     Indication: MIGRAINE
     Dates: start: 20000101, end: 20041201
  8. FLEXERIL [Concomitant]
     Indication: MUSCLE RELAXANT THERAPY
     Dates: start: 20000201
  9. ZANAFLEX [Concomitant]
     Indication: NECK PAIN
     Dates: start: 20001201, end: 20060701
  10. HYDROCODONE [Concomitant]
     Indication: NECK PAIN
     Dates: start: 19990701
  11. OXYCODONE HCL [Concomitant]
     Indication: NECK PAIN
     Dates: start: 20031101, end: 20060401
  12. OXYCODONE HCL [Concomitant]
     Indication: BACK PAIN
  13. OXYCONTIN [Concomitant]
     Indication: NECK PAIN
     Dates: start: 19990701
  14. OXYCONTIN [Concomitant]
     Indication: BACK PAIN
  15. LIDODERM [Concomitant]
     Indication: NECK PAIN
     Dates: start: 20000701, end: 20060601
  16. TIZANIDINE [Concomitant]
     Indication: NECK PAIN
     Dates: start: 20020801
  17. LORCET-HD [Concomitant]
     Indication: NECK PAIN
     Dates: start: 19990701
  18. LORTAB [Concomitant]
     Indication: NECK PAIN
     Dates: start: 20010601
  19. STADOL [Concomitant]
     Indication: MIGRAINE
     Dates: start: 20020401, end: 20061201

REACTIONS (2)
  - DEEP VEIN THROMBOSIS [None]
  - MYOCARDIAL INFARCTION [None]
